FAERS Safety Report 10368230 (Version 2)
Quarter: 2014Q4

REPORT INFORMATION
  Report Type: Spontaneous
  Country: US (occurrence: None)
  Receive Date: 20140805
  Receipt Date: 20141002
  Transmission Date: 20150528
  Serious: Yes (Other)
  Sender: FDA-Public Use
  Company Number: 2014AP003707

PATIENT
  Age: 52 Year
  Sex: Male
  Weight: 87 kg

DRUGS (2)
  1. FERRIPROX [Suspect]
     Active Substance: DEFERIPRONE
     Indication: SUPERFICIAL SIDEROSIS OF CENTRAL NERVOUS SYSTEM
     Route: 048
     Dates: start: 20120413
  2. MULTIVITAMINS (ASCORBIC ACID, ERGOCALCIFEROL, FOLIC ACID, NICOTINAMIDE, RETINOL, RIBOFLAVIN, THAIMINE HYDROCHLORIDE) [Concomitant]

REACTIONS (1)
  - Mental impairment [None]

NARRATIVE: CASE EVENT DATE: 20120413
